FAERS Safety Report 6951467-6 (Version None)
Quarter: 2010Q3

REPORT INFORMATION
  Report Type: 
  Country: None (occurrence: None)
  Receive Date: 20100828
  Receipt Date: 20100323
  Transmission Date: 20110219
  Serious: No
  Sender: FDA-Public Use
  Company Number: US-ABBOTT-10P-163-0635215-00

PATIENT
  Sex: Male
  Weight: 96.702 kg

DRUGS (3)
  1. NIASPAN [Suspect]
     Indication: BLOOD CHOLESTEROL INCREASED
     Dates: start: 20100217, end: 20100316
  2. NIASPAN [Suspect]
     Dosage: HALF TABLET IN THE MORNING, HALF TABLET AT NIGHT
     Dates: start: 20100316
  3. CALAN [Concomitant]
     Indication: HYPERTENSION

REACTIONS (1)
  - MUSCLE SPASMS [None]
